FAERS Safety Report 13509542 (Version 1)
Quarter: 2017Q2

REPORT INFORMATION
  Report Type: Spontaneous
  Country: US (occurrence: US)
  Receive Date: 20170503
  Receipt Date: 20170503
  Transmission Date: 20170830
  Serious: No
  Sender: FDA-Public Use
  Company Number: US-SA-2017SA037746

PATIENT
  Sex: Male

DRUGS (5)
  1. ALIROCUMAB PREFILLED PEN [Concomitant]
     Active Substance: ALIROCUMAB
     Dates: start: 201606
  2. NITROGLYCERIN. [Concomitant]
     Active Substance: NITROGLYCERIN
  3. PRALUENT [Suspect]
     Active Substance: ALIROCUMAB
     Route: 065
     Dates: start: 201606
  4. EFFIENT [Concomitant]
     Active Substance: PRASUGREL HYDROCHLORIDE
  5. ASA [Concomitant]
     Active Substance: ASPIRIN

REACTIONS (5)
  - Injection site swelling [Unknown]
  - Injection site erythema [Unknown]
  - Injection site vesicles [Unknown]
  - Injection site warmth [Unknown]
  - Injection site rash [Unknown]
